FAERS Safety Report 20328810 (Version 1)
Quarter: 2022Q1

REPORT INFORMATION
  Report Type: Report from Study
  Country: IT (occurrence: None)
  Receive Date: 20220112
  Receipt Date: 20220112
  Transmission Date: 20220423
  Serious: Yes (Other)
  Sender: FDA-Public Use
  Company Number: IT-Merck Healthcare KGaA-9264498

PATIENT
  Age: 30 Day
  Sex: Female

DRUGS (1)
  1. EUTHYROX [Suspect]
     Active Substance: LEVOTHYROXINE SODIUM
     Indication: Product used for unknown indication
     Route: 064

REACTIONS (5)
  - Cardiac disorder [Unknown]
  - Cystic fibrosis [Unknown]
  - Cough [Unknown]
  - Increased viscosity of upper respiratory secretion [Unknown]
  - Foetal exposure during pregnancy [Recovered/Resolved]
